FAERS Safety Report 10985578 (Version 1)
Quarter: 2015Q2

REPORT INFORMATION
  Report Type: Spontaneous
  Country: US (occurrence: None)
  Receive Date: 20150403
  Receipt Date: 20150403
  Transmission Date: 20150821
  Serious: Yes (Hospitalization)
  Sender: FDA-Public Use
  Company Number: None

PATIENT
  Age: 69 Year
  Sex: Female
  Weight: 61.69 kg

DRUGS (8)
  1. ENALAPRIL [Concomitant]
     Active Substance: ENALAPRIL
  2. LEVEMIR [Concomitant]
     Active Substance: INSULIN DETEMIR
  3. ASPIRIN. [Concomitant]
     Active Substance: ASPIRIN
  4. LIPITOR [Concomitant]
     Active Substance: ATORVASTATIN CALCIUM
  5. AMARYL [Concomitant]
     Active Substance: GLIMEPIRIDE
  6. REPAGLINIDE. [Concomitant]
     Active Substance: REPAGLINIDE
  7. LASIX [Concomitant]
     Active Substance: FUROSEMIDE
  8. XARELTO [Suspect]
     Active Substance: RIVAROXABAN
     Indication: PULMONARY EMBOLISM
     Route: 048
     Dates: start: 20141201, end: 20150319

REACTIONS (9)
  - Pulmonary embolism [None]
  - Abdominal distension [None]
  - Dyspnoea [None]
  - Blood alkaline phosphatase increased [None]
  - Bilirubin conjugated increased [None]
  - Gamma-glutamyltransferase increased [None]
  - Blood bilirubin unconjugated increased [None]
  - Oedema peripheral [None]
  - Abdominal pain upper [None]

NARRATIVE: CASE EVENT DATE: 20150313
